FAERS Safety Report 4877869-X (Version None)
Quarter: 2006Q1

REPORT INFORMATION
  Report Type: 
  Country: None (occurrence: None)
  Receive Date: 20060109
  Receipt Date: 20051228
  Transmission Date: 20060701
  Serious: Yes (Hospitalization)
  Sender: FDA-Public Use
  Company Number: TCI2005A05289

PATIENT
  Age: 52 Year
  Sex: Female

DRUGS (3)
  1. ACTOS [Suspect]
     Indication: DIABETES MELLITUS
     Dosage: PER ORAL
     Route: 048
  2. GLUCOBAY [Suspect]
     Dosage: PER ORAL
     Route: 048
     Dates: start: 20041220, end: 20051227
  3. BIGUANIDES [Concomitant]

REACTIONS (1)
  - HEPATITIS FULMINANT [None]
